FAERS Safety Report 12546951 (Version 1)
Quarter: 2016Q3

REPORT INFORMATION
  Report Type: Report from Study
  Country: US (occurrence: US)
  Receive Date: 20160711
  Receipt Date: 20160711
  Transmission Date: 20161109
  Serious: Yes (Hospitalization)
  Sender: FDA-Public Use
  Company Number: US-BAYER-2016-129917

PATIENT
  Age: 81 Year
  Sex: Female
  Weight: 60.3 kg

DRUGS (3)
  1. ENOXAPARIN [Suspect]
     Active Substance: ENOXAPARIN
     Indication: THROMBOSIS PROPHYLAXIS
  2. ASPIRIN 325MG [Suspect]
     Active Substance: ASPIRIN
     Dosage: 325 MG, QD
  3. ENOXAPARIN [Suspect]
     Active Substance: ENOXAPARIN
     Indication: KNEE ARTHROPLASTY

REACTIONS (1)
  - Hospitalisation [None]
